FAERS Safety Report 12867246 (Version 1)
Quarter: 2016Q4

REPORT INFORMATION
  Report Type: Spontaneous
  Country: GB (occurrence: GB)
  Receive Date: 20161020
  Receipt Date: 20161020
  Transmission Date: 20170207
  Serious: Yes (Disabling, Other)
  Sender: FDA-Public Use
  Company Number: GB-TEVA-703330ACC

PATIENT
  Age: 69 Year
  Sex: Female
  Weight: 69.85 kg

DRUGS (10)
  1. GAVISCON ADVANCE [Concomitant]
     Active Substance: POTASSIUM BICARBONATE\SODIUM ALGINATE
  2. AMITRIPTYLINE [Concomitant]
     Active Substance: AMITRIPTYLINE
  3. CETIRIZINE [Concomitant]
     Active Substance: CETIRIZINE HYDROCHLORIDE
  4. TEMAZEPAM. [Concomitant]
     Active Substance: TEMAZEPAM
  5. TRAMADOL. [Concomitant]
     Active Substance: TRAMADOL
  6. CELECOXIB. [Concomitant]
     Active Substance: CELECOXIB
  7. COLPERMIN [Concomitant]
  8. BECLOMETASONE DIPROPIONATE [Concomitant]
     Active Substance: BECLOMETHASONE DIPROPIONATE
  9. SIMVASTATIN. [Suspect]
     Active Substance: SIMVASTATIN
     Indication: BLOOD CHOLESTEROL INCREASED
     Route: 048
     Dates: start: 20160412, end: 20160416
  10. RABEPRAZOLE SODIUM. [Concomitant]
     Active Substance: RABEPRAZOLE SODIUM

REACTIONS (5)
  - Abdominal distension [Unknown]
  - Decreased appetite [Unknown]
  - Abdominal pain [Unknown]
  - Drug-induced liver injury [Recovered/Resolved]
  - Malaise [Unknown]

NARRATIVE: CASE EVENT DATE: 20160415
